FAERS Safety Report 12336897 (Version 1)
Quarter: 2016Q2

REPORT INFORMATION
  Report Type: Spontaneous
  Country: US (occurrence: None)
  Receive Date: 20160504
  Receipt Date: 20160504
  Transmission Date: 20160815
  Serious: Yes (Other)
  Sender: FDA-Public Use
  Company Number: None

PATIENT
  Age: 89 Year
  Sex: Male
  Weight: 69.4 kg

DRUGS (15)
  1. TERAZOSIN [Concomitant]
     Active Substance: TERAZOSIN\TERAZOSIN HYDROCHLORIDE
  2. VITAMIN B COMPLEX WITH C [Concomitant]
     Active Substance: ASCORBIC ACID\CALCIUM PANTOTHENATE\CYANOCOBALAMIN\NIACINAMIDE\PYRIDOXINE HYDROCHLORIDE\RIBOFLAVIN\THIAMINE MONONITRATE
  3. CAL WITH VIT D [Concomitant]
  4. POTASSIUM CL ER [Concomitant]
     Active Substance: POTASSIUM CHLORIDE
  5. ATORVASTATIN [Concomitant]
     Active Substance: ATORVASTATIN
  6. TYLENOL [Concomitant]
     Active Substance: ACETAMINOPHEN
  7. DONEPEZIL. [Concomitant]
     Active Substance: DONEPEZIL
  8. LISINOPRIL. [Concomitant]
     Active Substance: LISINOPRIL
  9. WARFARIN [Concomitant]
     Active Substance: WARFARIN
  10. BICALUTAMIDE. [Concomitant]
     Active Substance: BICALUTAMIDE
  11. XTANDI [Suspect]
     Active Substance: ENZALUTAMIDE
     Indication: PROSTATE CANCER
     Route: 048
     Dates: start: 20151014, end: 20160211
  12. OMEPRAZOLE. [Concomitant]
     Active Substance: OMEPRAZOLE
  13. FUROSEMIDE. [Concomitant]
     Active Substance: FUROSEMIDE
  14. VITAMIN D [Concomitant]
     Active Substance: CHOLECALCIFEROL
  15. HORMONE SHOT [Concomitant]

REACTIONS (8)
  - Drug dispensing error [None]
  - Diarrhoea [None]
  - Hypersomnia [None]
  - Dyspnoea [None]
  - Drug dose omission [None]
  - Unresponsive to stimuli [None]
  - Weight decreased [None]
  - Asthenia [None]

NARRATIVE: CASE EVENT DATE: 20151020
